FAERS Safety Report 4736637-X (Version None)
Quarter: 2005Q3

REPORT INFORMATION
  Report Type: 
  Country: None (occurrence: None)
  Receive Date: 20050808
  Receipt Date: 20050802
  Transmission Date: 20060218
  Serious: Yes (Other)
  Sender: FDA-Public Use
  Company Number: 2005UW11402

PATIENT
  Age: 54 Year
  Sex: Female
  Weight: 56.6 kg

DRUGS (3)
  1. SEROQUEL [Suspect]
     Route: 048
     Dates: start: 20050701
  2. STELAZINE [Concomitant]
     Dosage: 5-6 MG/DAY
     Dates: start: 19890101, end: 20050701
  3. STELAZINE [Concomitant]
     Dates: start: 20050701

REACTIONS (4)
  - AGITATION [None]
  - CONFUSIONAL STATE [None]
  - INSOMNIA [None]
  - SUICIDAL IDEATION [None]
